FAERS Safety Report 7085686-8 (Version None)
Quarter: 2010Q4

REPORT INFORMATION
  Report Type: 
  Country: None (occurrence: None)
  Receive Date: 20101105
  Receipt Date: 20101021
  Transmission Date: 20110411
  Serious: Yes (Other)
  Sender: FDA-Public Use
  Company Number: ES-ELI_LILLY_AND_COMPANY-ES201009006872

PATIENT
  Age: 54 Year
  Sex: Male

DRUGS (6)
  1. EFFIENT [Suspect]
     Indication: CORONARY ANGIOPLASTY
     Dosage: 60 MG, LOADING DOSAGE
     Route: 048
     Dates: start: 20100906, end: 20100906
  2. EFFIENT [Suspect]
     Dosage: 10 MG, DAILY (1/D)
     Route: 048
     Dates: start: 20100907, end: 20100909
  3. SIMVASTATIN [Concomitant]
  4. ACETYLSALICYLIC ACID [Concomitant]
     Dosage: 100 MG, DAILY (1/D)
     Route: 048
  5. ACOVIL [Concomitant]
     Dosage: 2.5 MG, DAILY (1/D)
     Route: 048
  6. EMCONCOR [Concomitant]
     Dosage: 5 MG, DAILY (1/D)
     Route: 048

REACTIONS (3)
  - PRURITUS [None]
  - RASH [None]
  - URTICARIA [None]
